FAERS Safety Report 18409297 (Version 1)
Quarter: 2020Q4

REPORT INFORMATION
  Report Type: Spontaneous
  Country: US (occurrence: US)
  Receive Date: 20201021
  Receipt Date: 20201021
  Transmission Date: 20210114
  Serious: No
  Sender: FDA-Public Use
  Company Number: None

PATIENT
  Age: 23 Year
  Sex: Male

DRUGS (1)
  1. TRUVADA [Suspect]
     Active Substance: EMTRICITABINE\TENOFOVIR DISOPROXIL FUMARATE
     Dosage: OTHER DOSE:200-300MG;?
     Route: 048
     Dates: start: 202005

REACTIONS (2)
  - Therapy interrupted [None]
  - Abdominal discomfort [None]

NARRATIVE: CASE EVENT DATE: 20201013
